FAERS Safety Report 15538939 (Version 3)
Quarter: 2018Q4

REPORT INFORMATION
  Report Type: Spontaneous
  Country: BR (occurrence: BR)
  Receive Date: 20181022
  Receipt Date: 20181114
  Transmission Date: 20190205
  Serious: Yes (Hospitalization, Other)
  Sender: FDA-Public Use
  Company Number: BR-PFIZER INC-2018423339

PATIENT
  Age: 68 Year
  Sex: Female

DRUGS (4)
  1. LORAX [Suspect]
     Active Substance: LORAZEPAM
     Indication: INSOMNIA
  2. LORAX [Suspect]
     Active Substance: LORAZEPAM
     Indication: PROCEDURAL ANXIETY
     Dosage: 2 TABLETS OF 2 MG A DAY
     Dates: start: 2010, end: 20181016
  3. ATENOLOL. [Concomitant]
     Active Substance: ATENOLOL
     Dosage: UNK
     Dates: start: 2010
  4. DIOVAN AMLOFIX [Concomitant]
     Dosage: UNK
     Dates: start: 2016

REACTIONS (9)
  - Adrenal mass [Recovered/Resolved]
  - Subcutaneous abscess [Recovered/Resolved]
  - Calculus bladder [Unknown]
  - Hernia [Recovered/Resolved]
  - Fall [Recovered/Resolved]
  - Joint effusion [Recovered/Resolved]
  - Cataract [Recovered/Resolved]
  - Cholelithiasis [Recovered/Resolved]
  - Facial bones fracture [Recovered/Resolved]

NARRATIVE: CASE EVENT DATE: 2012
